FAERS Safety Report 8215464-5 (Version None)
Quarter: 2012Q1

REPORT INFORMATION
  Report Type: 
  Country: None (occurrence: None)
  Receive Date: 20120316
  Receipt Date: 20120314
  Transmission Date: 20120608
  Serious: Yes (Other)
  Sender: FDA-Public Use
  Company Number: IT-ROCHE-1009087

PATIENT
  Sex: Male

DRUGS (4)
  1. MEDROL [Concomitant]
     Indication: RHEUMATOID ARTHRITIS
     Route: 048
     Dates: start: 20100109, end: 20101120
  2. RISEDRONATE SODIUM [Concomitant]
     Route: 048
     Dates: start: 20090101, end: 20110708
  3. FOSAVANCE [Concomitant]
     Indication: OSTEOPOROSIS
     Route: 048
     Dates: start: 20110701, end: 20111028
  4. ACTEMRA [Suspect]
     Indication: RHEUMATOID ARTHRITIS
     Route: 042
     Dates: start: 20110308, end: 20111028

REACTIONS (1)
  - GYNAECOMASTIA [None]
